FAERS Safety Report 13006549 (Version 2)
Quarter: 2017Q2

REPORT INFORMATION
  Report Type: Spontaneous
  Country: US (occurrence: US)
  Receive Date: 20161207
  Receipt Date: 20170423
  Transmission Date: 20170830
  Serious: No
  Sender: FDA-Public Use
  Company Number: US-CELGENEUS-USA-2016114785

PATIENT
  Age: 49 Year
  Sex: Female

DRUGS (1)
  1. OTEZLA [Suspect]
     Active Substance: APREMILAST
     Indication: PSORIATIC ARTHROPATHY
     Dosage: 30  MG
     Route: 048
     Dates: start: 20160407, end: 201610

REACTIONS (1)
  - Therapy non-responder [Recovering/Resolving]

NARRATIVE: CASE EVENT DATE: 20160716
